FAERS Safety Report 10515986 (Version 5)
Quarter: 2015Q3

REPORT INFORMATION
  Report Type: Report from Study
  Country: CZ (occurrence: CZ)
  Receive Date: 20141014
  Receipt Date: 20150908
  Transmission Date: 20151125
  Serious: Yes (Life-Threatening, Hospitalization, Disabling, Other)
  Sender: FDA-Public Use
  Company Number: CZ-009507513-1305CZE014726

PATIENT
  Age: 12 Year
  Sex: Male

DRUGS (45)
  1. BEVACIZUMAB [Suspect]
     Active Substance: BEVACIZUMAB
     Indication: BRAIN NEOPLASM MALIGNANT
     Dosage: UNK
     Route: 042
  2. FENTANYL CITRATE. [Concomitant]
     Active Substance: FENTANYL CITRATE
  3. ONDANSETRONIUM [Concomitant]
     Dosage: UNK
     Dates: start: 20130206, end: 20130206
  4. ONDANSETRONIUM [Concomitant]
     Dosage: UNK
     Dates: start: 20130603, end: 20130603
  5. DEXTROSE. [Concomitant]
     Active Substance: DEXTROSE
     Dosage: UNK
     Dates: start: 20130515
  6. DEXAMETHASONE. [Concomitant]
     Active Substance: DEXAMETHASONE
     Dosage: UNK
     Dates: start: 20130320, end: 20130511
  7. DEXAMETHASONE. [Concomitant]
     Active Substance: DEXAMETHASONE
     Dosage: 8 MG, QD
     Route: 042
     Dates: start: 20130601, end: 20130601
  8. TRAMADOL HYDROCHLORIDE. [Concomitant]
     Active Substance: TRAMADOL HYDROCHLORIDE
     Dosage: REPORTED AS TRAMADOLUM
     Dates: start: 20130129, end: 20130206
  9. TEMOZOLOMIDE. [Suspect]
     Active Substance: TEMOZOLOMIDE
     Dosage: 280 MG, UNK
     Route: 065
     Dates: start: 20130423, end: 20130427
  10. OMEPRAZOLE. [Concomitant]
     Active Substance: OMEPRAZOLE
     Dosage: UNK
     Dates: start: 20130515
  11. OMEPRAZOLE. [Concomitant]
     Active Substance: OMEPRAZOLE
     Dosage: UNK
     Dates: start: 20130531, end: 20130531
  12. SULFAMETHOXAZOLE (+) TRIMETHOPRIM [Concomitant]
     Active Substance: SULFAMETHOXAZOLE\TRIMETHOPRIM
     Dosage: UNK
     Dates: start: 20130409, end: 20130429
  13. HYDROCORTISONE. [Concomitant]
     Active Substance: HYDROCORTISONE
     Dosage: UNK
     Dates: start: 20130209, end: 20130209
  14. TEMOZOLOMIDE. [Suspect]
     Active Substance: TEMOZOLOMIDE
     Dosage: THE DOSE ADJUSMENT WAS DONE DUE TO FEBRILE NEUTROPENIA AND WBC COUNT DECREASE
     Route: 065
     Dates: start: 20130521
  15. BEVACIZUMAB [Suspect]
     Active Substance: BEVACIZUMAB
     Dosage: 485 MG, UNK
     Route: 065
     Dates: start: 20130226
  16. ONDANSETRONIUM [Concomitant]
     Dosage: UNK
     Dates: start: 20130423, end: 2013
  17. NADROPARIN CALCIUM [Concomitant]
     Active Substance: NADROPARIN CALCIUM
     Dosage: 3800 UI DAILY
     Route: 058
     Dates: start: 20130129, end: 20130202
  18. DEXAMETHASONE. [Concomitant]
     Active Substance: DEXAMETHASONE
     Dosage: 6 MG, 2 IN 1DAY
     Route: 042
     Dates: start: 20130206, end: 20130207
  19. DEXAMETHASONE. [Concomitant]
     Active Substance: DEXAMETHASONE
     Dosage: UNK
     Route: 065
     Dates: start: 20130209, end: 20130209
  20. DEXAMETHASONE. [Concomitant]
     Active Substance: DEXAMETHASONE
     Dosage: UNK
     Dates: start: 20130512, end: 20130512
  21. HYDROCORTISONE. [Concomitant]
     Active Substance: HYDROCORTISONE
     Dosage: 10 MG, BID
     Route: 048
     Dates: start: 20130305, end: 20130319
  22. BEVACIZUMAB [Suspect]
     Active Substance: BEVACIZUMAB
     Dosage: 500 MG, CYCLE 1 DAY 15
     Route: 065
     Dates: start: 20130507
  23. ONDANSETRONIUM [Concomitant]
     Dosage: UNK
     Dates: start: 20130211, end: 20130324
  24. SILYMARIN [Concomitant]
     Active Substance: MILK THISTLE
     Dosage: DRUG REPORTED AS SILYMARINUM
     Dates: start: 20130128, end: 20130213
  25. SULFAMETHOXAZOLE (+) TRIMETHOPRIM [Concomitant]
     Active Substance: SULFAMETHOXAZOLE\TRIMETHOPRIM
     Dosage: UNK
     Dates: start: 20130205, end: 20130209
  26. HYDROCORTISONE. [Concomitant]
     Active Substance: HYDROCORTISONE
     Dosage: UNK
     Dates: start: 20130109, end: 20130109
  27. TEMOZOLOMIDE. [Suspect]
     Active Substance: TEMOZOLOMIDE
     Indication: BRAIN NEOPLASM MALIGNANT
     Dosage: UNK
     Route: 065
  28. DEXTROSE. [Concomitant]
     Active Substance: DEXTROSE
     Dosage: UNK
     Dates: start: 20130205, end: 20130205
  29. DEXTROSE. [Concomitant]
     Active Substance: DEXTROSE
     Dosage: UNK
     Dates: start: 20130512, end: 20130514
  30. DEXAMETHASONE. [Concomitant]
     Active Substance: DEXAMETHASONE
     Dosage: UNK
     Dates: start: 20130531, end: 20130531
  31. BEVACIZUMAB [Suspect]
     Active Substance: BEVACIZUMAB
     Dosage: 460 MG, UNK
     Route: 042
     Dates: start: 20130521
  32. FUROSEMIDE. [Concomitant]
     Active Substance: FUROSEMIDE
     Route: 048
  33. ONDANSETRONIUM [Concomitant]
     Dosage: UNK
     Dates: start: 20130205, end: 20130205
  34. DEXAMETHASONE. [Concomitant]
     Active Substance: DEXAMETHASONE
     Dosage: 4 MG, SINGLE DOSE
     Route: 042
     Dates: start: 20130205, end: 20130205
  35. DEXAMETHASONE. [Concomitant]
     Active Substance: DEXAMETHASONE
     Dosage: 2 MG, UNK
     Route: 048
     Dates: start: 20130219, end: 20130226
  36. TRAMADOL HYDROCHLORIDE. [Concomitant]
     Active Substance: TRAMADOL HYDROCHLORIDE
     Dosage: UNK
     Dates: start: 20130209, end: 20130210
  37. TEMOZOLOMIDE. [Suspect]
     Active Substance: TEMOZOLOMIDE
     Dosage: 100 MG, UNK
     Route: 065
     Dates: start: 20130211, end: 20130324
  38. OMEPRAZOLE. [Concomitant]
     Active Substance: OMEPRAZOLE
     Dosage: UNK
     Dates: start: 20130207, end: 20130319
  39. BEVACIZUMAB [Suspect]
     Active Substance: BEVACIZUMAB
     Dosage: 460 MG, UNK
     Route: 042
     Dates: start: 20130211
  40. DEXAMETHASONE. [Concomitant]
     Active Substance: DEXAMETHASONE
     Dosage: 8 MG, SINGLE DOSE
     Route: 042
     Dates: start: 20130206, end: 20130206
  41. DEXAMETHASONE. [Concomitant]
     Active Substance: DEXAMETHASONE
     Dosage: 2 MG, 3 IN 1DAY
     Route: 048
     Dates: start: 20130207, end: 20130218
  42. DEXAMETHASONE. [Concomitant]
     Active Substance: DEXAMETHASONE
     Dosage: 1 MG, QD
     Route: 048
     Dates: start: 20130227, end: 20130301
  43. TRAMADOL HYDROCHLORIDE. [Concomitant]
     Active Substance: TRAMADOL HYDROCHLORIDE
     Dosage: UNK
     Dates: start: 20130512, end: 2013
  44. HYDROCORTISONE. [Concomitant]
     Active Substance: HYDROCORTISONE
     Dosage: 50 MG, QD
     Route: 048
     Dates: start: 20130305, end: 20130319
  45. PROMETHAZINE [Concomitant]
     Active Substance: PROMETHAZINE\PROMETHAZINE HYDROCHLORIDE
     Dosage: UNK
     Dates: start: 20130129, end: 20130129

REACTIONS (3)
  - Deep vein thrombosis [Not Recovered/Not Resolved]
  - Febrile neutropenia [Recovered/Resolved]
  - Device malfunction [Recovered/Resolved with Sequelae]

NARRATIVE: CASE EVENT DATE: 20130209
